FAERS Safety Report 8535991-0 (Version None)
Quarter: 2012Q3

REPORT INFORMATION
  Report Type: 
  Country: None (occurrence: None)
  Receive Date: 20120718
  Receipt Date: 20120718
  Transmission Date: 20120928
  Serious: Yes (Hospitalization)
  Sender: FDA-Public Use
  Company Number: None

PATIENT
  Age: 61 Year
  Sex: Male
  Weight: 60.6 kg

DRUGS (1)
  1. HEPARIN [Suspect]
     Indication: THROMBOSIS PROPHYLAXIS
     Dosage: 1000 UNITS PER HOUR IV
     Route: 042
     Dates: start: 20120615, end: 20120622

REACTIONS (3)
  - GASTRIC HAEMORRHAGE [None]
  - ANAEMIA [None]
  - HAEMATOCHEZIA [None]
